FAERS Safety Report 4996493-1 (Version None)
Quarter: 2006Q2

REPORT INFORMATION
  Report Type: 
  Country: None (occurrence: None)
  Receive Date: 20060509
  Receipt Date: 20060427
  Transmission Date: 20061013
  Serious: Yes (Death)
  Sender: FDA-Public Use
  Company Number: GB-JNJFOC-20060406104

PATIENT
  Age: 61 Year
  Sex: Female

DRUGS (7)
  1. REMICADE [Suspect]
     Indication: ARTHROPATHY
     Route: 042
  2. AZATHIOPRINE [Suspect]
     Indication: ARTHRITIS
     Route: 065
  3. PREDNISOLONE [Concomitant]
     Indication: ARTHRITIS
     Route: 065
  4. OXYGEN [Concomitant]
     Route: 065
  5. CEFUROXIME [Concomitant]
     Route: 065
  6. CLARITHROMYCIN [Concomitant]
     Route: 065
  7. CYCLOPHOSPHAMIDE [Concomitant]
     Route: 042

REACTIONS (7)
  - BRONCHIECTASIS [None]
  - COUGH [None]
  - CREPITATIONS [None]
  - DYSPNOEA EXACERBATED [None]
  - INTERSTITIAL LUNG DISEASE [None]
  - PULMONARY FIBROSIS [None]
  - TACHYPNOEA [None]
